FAERS Safety Report 9971588 (Version 2)
Quarter: 2014Q1

REPORT INFORMATION
  Report Type: Report from Study
  Country: US (occurrence: US)
  Receive Date: 20140306
  Receipt Date: 20140306
  Transmission Date: 20141002
  Serious: No
  Sender: FDA-Public Use
  Company Number: US-ABBVIE-13P-163-1135329-00

PATIENT
  Age: 79 Year
  Sex: Female
  Weight: 54.48 kg

DRUGS (10)
  1. HUMIRA [Suspect]
     Indication: COLITIS ULCERATIVE
     Dates: start: 20130608, end: 20130608
  2. HUMIRA [Suspect]
     Indication: CROHN^S DISEASE
     Dates: start: 20130622, end: 20130622
  3. HUMIRA [Suspect]
     Dates: start: 20130706
  4. ASACOL [Concomitant]
     Indication: COLITIS ULCERATIVE
  5. LEXAPRO [Concomitant]
     Indication: ANXIETY
  6. XANAX [Concomitant]
     Indication: ANXIETY
  7. FISH OIL [Concomitant]
     Indication: PRODUCT USED FOR UNKNOWN INDICATION
  8. PROBIOTICS [Concomitant]
     Indication: PRODUCT USED FOR UNKNOWN INDICATION
  9. VITAMIN C [Concomitant]
     Indication: PRODUCT USED FOR UNKNOWN INDICATION
  10. VITAMIN B [Concomitant]
     Indication: PRODUCT USED FOR UNKNOWN INDICATION

REACTIONS (5)
  - Injection site warmth [Not Recovered/Not Resolved]
  - Insomnia [Recovering/Resolving]
  - Injection site erythema [Not Recovered/Not Resolved]
  - Injection site pruritus [Not Recovered/Not Resolved]
  - Injection site swelling [Not Recovered/Not Resolved]
